FAERS Safety Report 10287346 (Version 1)
Quarter: 2014Q3

REPORT INFORMATION
  Report Type: Spontaneous
  Country: US (occurrence: US)
  Receive Date: 20140709
  Receipt Date: 20140709
  Transmission Date: 20150326
  Serious: No
  Sender: FDA-Public Use
  Company Number: US-PFIZER INC-2014188452

PATIENT
  Age: 76 Year
  Sex: Female

DRUGS (3)
  1. TIMOLOL [Concomitant]
     Active Substance: TIMOLOL
     Dosage: UNK, DAILY (IN MORNING)
     Route: 047
  2. CADUET [Suspect]
     Active Substance: AMLODIPINE BESYLATE\ATORVASTATIN CALCIUM
     Dosage: 5/20 MG, 1X/DAY
     Route: 048
  3. LATANOPROST. [Concomitant]
     Active Substance: LATANOPROST
     Dosage: UNK, DAILY (IN EVENING)
     Route: 047

REACTIONS (2)
  - Blood pressure inadequately controlled [Unknown]
  - Dizziness [Unknown]

NARRATIVE: CASE EVENT DATE: 201406
